FAERS Safety Report 22006728 (Version 2)
Quarter: 2023Q2

REPORT INFORMATION
  Report Type: Spontaneous
  Country: BR (occurrence: BR)
  Receive Date: 20230217
  Receipt Date: 20230612
  Transmission Date: 20230722
  Serious: Yes (Other)
  Sender: FDA-Public Use
  Company Number: BR-002147023-NVSC2023BR033221

PATIENT
  Age: 64 Year
  Sex: Female

DRUGS (4)
  1. GLYCOPYRROLATE [Suspect]
     Active Substance: GLYCOPYRROLATE
     Indication: Chronic obstructive pulmonary disease
     Dosage: 50 MG, QD (STARTED ABOUT TWO YEARS AGO)
     Route: 065
  2. GLYCOPYRROLATE [Suspect]
     Active Substance: GLYCOPYRROLATE
     Indication: Emphysema
     Dosage: 50 UG (30 CS, CPS AND 1 INHALER)
     Route: 065
  3. GLYCOPYRRONIUM\INDACATEROL [Suspect]
     Active Substance: GLYCOPYRRONIUM\INDACATEROL
     Indication: Product used for unknown indication
     Dosage: UNK
     Route: 065
  4. ALBUTEROL [Concomitant]
     Active Substance: ALBUTEROL
     Indication: Chronic obstructive pulmonary disease
     Dosage: UNK
     Route: 065

REACTIONS (5)
  - Syncope [Unknown]
  - Dyspnoea [Unknown]
  - Panic disorder [Not Recovered/Not Resolved]
  - Nervousness [Unknown]
  - Product availability issue [Unknown]

NARRATIVE: CASE EVENT DATE: 20230209
